FAERS Safety Report 11809934 (Version 1)
Quarter: 2015Q4

REPORT INFORMATION
  Report Type: Spontaneous
  Country: JP (occurrence: JP)
  Receive Date: 20151208
  Receipt Date: 20151208
  Transmission Date: 20160305
  Serious: Yes (Other)
  Sender: FDA-Public Use
  Company Number: JP-ACCORD-036061

PATIENT
  Age: 73 Year
  Sex: Male

DRUGS (3)
  1. GEMCITABINE/GEMCITABINE HYDROCHLORIDE [Suspect]
     Active Substance: GEMCITABINE\GEMCITABINE HYDROCHLORIDE
     Indication: TRANSITIONAL CELL CARCINOMA
     Dosage: 75 AND 50 % DOSE (FOR FIRST 2 COURSES) THEN 50 % DOSE IN 3RD CYCLE
  2. PACLITAXEL/PACLITAXEL LIPOSOME [Suspect]
     Active Substance: PACLITAXEL
     Indication: TRANSITIONAL CELL CARCINOMA
     Dosage: 75 AND 50 % DOSE
  3. CISPLATIN. [Suspect]
     Active Substance: CISPLATIN
     Indication: TRANSITIONAL CELL CARCINOMA
     Dosage: 75 AND 50 % DOSE (FOR FIRST 2 COURSES) THEN 50 % DOSE IN 3RD CYCLE

REACTIONS (3)
  - Bone marrow failure [Unknown]
  - Renal impairment [Unknown]
  - Performance status decreased [Unknown]
